FAERS Safety Report 4933975-2 (Version None)
Quarter: 2006Q1

REPORT INFORMATION
  Report Type: 
  Country: None (occurrence: None)
  Receive Date: 20060303
  Receipt Date: 20060221
  Transmission Date: 20060701
  Serious: Yes (Life-Threatening, Hospitalization, Other)
  Sender: FDA-Public Use
  Company Number: DE-2006-002041

PATIENT
  Age: 93 Year
  Sex: Male

DRUGS (1)
  1. ULTRAVIST 370 [Suspect]
     Indication: COMPUTERISED TOMOGRAM ABDOMEN
     Dosage: 50 ML, 1 DOSE, INTRAVENOUS
     Route: 042
     Dates: start: 20060131, end: 20060131

REACTIONS (4)
  - CARDIAC ARREST [None]
  - CARDIOVASCULAR DISORDER [None]
  - LOSS OF CONSCIOUSNESS [None]
  - RESPIRATORY ARREST [None]
